FAERS Safety Report 23760318 (Version 2)
Quarter: 2024Q2

REPORT INFORMATION
  Report Type: Spontaneous
  Country: US (occurrence: US)
  Receive Date: 20240419
  Receipt Date: 20240507
  Transmission Date: 20240716
  Serious: Yes (Other)
  Sender: FDA-Public Use
  Company Number: US-SA-2015SA029037

PATIENT
  Age: 60 Year
  Sex: Female

DRUGS (5)
  1. DOCETAXEL [Suspect]
     Active Substance: DOCETAXEL\DOCETAXEL ANHYDROUS
     Indication: Lobular breast carcinoma in situ
     Dosage: 75 MG/M2, QCY (1ST CYCLE)
     Route: 065
     Dates: start: 20120607
  2. DOCETAXEL [Suspect]
     Active Substance: DOCETAXEL\DOCETAXEL ANHYDROUS
     Indication: Hormone receptor positive HER2 negative breast cancer
     Dosage: 75 MG/M2, QCY (2ND CYCLE)
     Route: 065
     Dates: start: 20120607
  3. CYCLOPHOSPHAMIDE [Suspect]
     Active Substance: CYCLOPHOSPHAMIDE
     Indication: Lobular breast carcinoma in situ
     Dosage: 600 MG/M2, QCY (1ST CYCLE)
     Route: 065
     Dates: start: 20120607
  4. CYCLOPHOSPHAMIDE [Suspect]
     Active Substance: CYCLOPHOSPHAMIDE
     Indication: Hormone receptor positive HER2 negative breast cancer
     Dosage: 600 MG/M2, QCY (2ND CYCLE)
     Route: 065
     Dates: start: 20120607
  5. SULFAMETHOXAZOLE\TRIMETHOPRIM [Concomitant]
     Active Substance: SULFAMETHOXAZOLE\TRIMETHOPRIM
     Indication: Erythema
     Dosage: UNK

REACTIONS (10)
  - Recall phenomenon [Recovered/Resolved]
  - Skin ulcer [Recovered/Resolved]
  - Erythema [Recovered/Resolved]
  - Oedema [Recovered/Resolved]
  - Skin exfoliation [Recovered/Resolved]
  - Lymphoedema [Recovered/Resolved]
  - Pyrexia [Recovered/Resolved]
  - Skin warm [Recovered/Resolved]
  - Pain [Recovered/Resolved]
  - Swelling [Recovered/Resolved]

NARRATIVE: CASE EVENT DATE: 20120601
